FAERS Safety Report 6635131-9 (Version None)
Quarter: 2010Q1

REPORT INFORMATION
  Report Type: 
  Country: None (occurrence: None)
  Receive Date: 20100315
  Receipt Date: 20100305
  Transmission Date: 20100710
  Serious: Yes (Hospitalization, Other)
  Sender: FDA-Public Use
  Company Number: PHEH2008US01033

PATIENT
  Sex: Male

DRUGS (19)
  1. ELIDEL [Suspect]
     Route: 061
     Dates: start: 20040101
  2. NEUPOGEN [Concomitant]
     Dosage: 480 MCG, UNK
  3. PROCRIT                            /00909301/ [Concomitant]
     Dosage: 40000 U, UNK
  4. ZOFRAN [Concomitant]
     Dosage: 12 MG, Q3
     Route: 048
  5. TRIAMCINOLONE [Concomitant]
     Dosage: 0.1 %, UNK
     Route: 061
  6. CLOTRIMAZOLE [Concomitant]
     Dosage: 1 %, UNK
     Route: 061
  7. VINCRISTINE [Concomitant]
     Dosage: 2.4 MG
  8. BLEOMYCIN [Concomitant]
     Dosage: 15 UNITS
     Route: 041
  9. ADRIAMYCIN PFS [Concomitant]
     Dosage: 40 MG
  10. CYTOXAN [Concomitant]
     Dosage: 1400 MG
  11. MESNA [Concomitant]
     Dosage: UNK
  12. BACTRIM [Concomitant]
     Dosage: UNK / DAILY
  13. FESOFOR [Concomitant]
     Dosage: UNK
  14. HEPARIN [Concomitant]
     Dosage: 600 UNITS
  15. PREDNISONE TAB [Concomitant]
     Dosage: UNK
  16. VEPESID [Concomitant]
     Dosage: 200 MG
     Route: 041
  17. ALLOPURINOL [Concomitant]
     Dosage: 300 MG / DAILY
     Route: 048
  18. VIGAMOX [Concomitant]
     Dosage: UNK
  19. FERROUS SULFATE TAB [Concomitant]

REACTIONS (24)
  - ALOPECIA [None]
  - ANAEMIA [None]
  - CONJUNCTIVITIS [None]
  - DYSPNOEA [None]
  - HODGKIN'S DISEASE [None]
  - INJURY [None]
  - LYMPHADENOPATHY [None]
  - LYMPHADENOPATHY MEDIASTINAL [None]
  - MEDIASTINUM NEOPLASM [None]
  - MUSCULAR WEAKNESS [None]
  - NEUROPATHY PERIPHERAL [None]
  - NEUTROPENIA [None]
  - PANCYTOPENIA [None]
  - PARATRACHEAL LYMPHADENOPATHY [None]
  - PERONEAL NERVE PALSY [None]
  - PHARYNGITIS [None]
  - PULMONARY HILUM MASS [None]
  - RASH [None]
  - RETROPERITONEAL LYMPHADENOPATHY [None]
  - STOMATITIS [None]
  - THROMBOCYTOPENIA [None]
  - TORUS FRACTURE [None]
  - VARICELLA [None]
  - WOUND INFECTION [None]
